FAERS Safety Report 13142272 (Version 1)
Quarter: 2017Q1

REPORT INFORMATION
  Report Type: Spontaneous
  Country: US (occurrence: US)
  Receive Date: 20170123
  Receipt Date: 20170123
  Transmission Date: 20170428
  Serious: No
  Sender: FDA-Public Use
  Company Number: US-PURDUE-USA-2016-0132138

PATIENT
  Sex: Male

DRUGS (2)
  1. BUTORPHANOL [Suspect]
     Active Substance: BUTORPHANOL
     Indication: PAIN
     Dosage: 1 SPRAY, Q6H
     Route: 045
  2. DILAUDID [Suspect]
     Active Substance: HYDROMORPHONE HYDROCHLORIDE
     Indication: PAIN
     Dosage: 2 MG, Q2H
     Route: 042

REACTIONS (1)
  - Drug ineffective [Unknown]
